FAERS Safety Report 17743665 (Version 1)
Quarter: 2020Q2

REPORT INFORMATION
  Report Type: Spontaneous
  Country: US (occurrence: US)
  Receive Date: 20200430
  Receipt Date: 20200430
  Transmission Date: 20200714
  Serious: Yes (Other)
  Sender: FDA-Public Use
  Company Number: None

PATIENT

DRUGS (2)
  1. EPINEPHRINE / LIDOCAINE [Suspect]
     Active Substance: EPINEPHRINE\LIDOCAINE
     Indication: ANAESTHESIA
     Route: 031
     Dates: start: 20191002, end: 20191002
  2. TRIAMCINOLONE - MOXIFLOXACIN (TRI-MOXI) COMPOUNDED [Suspect]
     Active Substance: MOXIFLOXACIN\TRIAMCINOLONE
     Dates: start: 20191002, end: 20191002

REACTIONS (1)
  - Toxic anterior segment syndrome [None]

NARRATIVE: CASE EVENT DATE: 20191002
